FAERS Safety Report 20934066 (Version 2)
Quarter: 2022Q2

REPORT INFORMATION
  Report Type: Report from Study
  Country: CN (occurrence: CN)
  Receive Date: 20220608
  Receipt Date: 20220609
  Transmission Date: 20220721
  Serious: Yes (Hospitalization)
  Sender: FDA-Public Use
  Company Number: CN-SA-SAC20220421001548

PATIENT
  Age: 39 Year
  Sex: Female
  Weight: 52.5 kg

DRUGS (7)
  1. ALGLUCOSIDASE ALFA [Suspect]
     Active Substance: ALGLUCOSIDASE ALFA
     Indication: Glycogen storage disease type II
     Dosage: UNK
     Route: 041
     Dates: start: 20210514, end: 20220413
  2. GINKGO LEAF EXTRACT AND DIPYRIDAMOLE [Concomitant]
     Dosage: UNK
     Route: 041
     Dates: start: 20220418, end: 20220430
  3. GASTRODIN [Concomitant]
     Active Substance: GASTRODIN
     Dosage: UNK
     Route: 041
     Dates: start: 20220418, end: 20220426
  4. ROSUVASTATIN [Concomitant]
     Active Substance: ROSUVASTATIN
     Dosage: UNK
     Route: 048
     Dates: start: 20220418
  5. POTASSIUM CHLORIDE [Concomitant]
     Active Substance: POTASSIUM CHLORIDE
     Dosage: UNK
     Route: 041
     Dates: start: 20220418, end: 20220418
  6. RABEPRAZOLE [Concomitant]
     Active Substance: RABEPRAZOLE
     Dosage: UNK
     Dates: start: 20220418, end: 20220426
  7. BETAHISTINE MESILATE [Concomitant]
     Active Substance: BETAHISTINE MESILATE
     Dosage: UNK
     Route: 048
     Dates: start: 20220414, end: 20220414

REACTIONS (1)
  - Cerebral infarction [Recovering/Resolving]

NARRATIVE: CASE EVENT DATE: 20220418
